FAERS Safety Report 9164980 (Version 1)
Quarter: 2013Q1

REPORT INFORMATION
  Report Type: Spontaneous
  Country: US (occurrence: US)
  Receive Date: 20130315
  Receipt Date: 20130315
  Transmission Date: 20140127
  Serious: Yes (Hospitalization)
  Sender: FDA-Public Use
  Company Number: US-BAYER-2013-030238

PATIENT
  Age: 21 Year
  Sex: Female
  Weight: 113.38 kg

DRUGS (12)
  1. YAZ [Suspect]
     Dosage: UNK
  2. YASMIN [Suspect]
     Indication: CONTRACEPTION
     Dosage: UNK
  3. OCELLA [Suspect]
     Dosage: UNK
  4. IBUPROFEN [IBUPROFEN] [Concomitant]
     Dosage: 800 MG, Q8HRS
     Dates: start: 20110119
  5. NORCO [Concomitant]
     Dosage: UNK
  6. MOTRIN [Concomitant]
     Dosage: UNK
  7. TYLENOL [Concomitant]
     Dosage: UNK
  8. ZOSYN [Concomitant]
     Dosage: UNK
  9. LEVAQUIN [Concomitant]
     Dosage: UNK
  10. HYDRALAZINE [Concomitant]
     Dosage: UNK
  11. PROTONIX [Concomitant]
     Dosage: UNK
  12. TRAMADOL [Concomitant]
     Dosage: UNK

REACTIONS (3)
  - Deep vein thrombosis [None]
  - Pelvic venous thrombosis [None]
  - Vena cava thrombosis [None]
